FAERS Safety Report 18616993 (Version 1)
Quarter: 2020Q4

REPORT INFORMATION
  Report Type: Spontaneous
  Country: FR (occurrence: FR)
  Receive Date: 20201215
  Receipt Date: 20201215
  Transmission Date: 20210114
  Serious: Yes (Hospitalization)
  Sender: FDA-Public Use
  Company Number: FR-ACCORD-210969

PATIENT
  Age: 74 Year
  Sex: Female

DRUGS (1)
  1. ITRACONAZOLE. [Suspect]
     Active Substance: ITRACONAZOLE
     Indication: BRONCHOPULMONARY ASPERGILLOSIS
     Route: 048
     Dates: start: 20201012, end: 202011

REACTIONS (4)
  - Hypokalaemia [Recovering/Resolving]
  - Atrial fibrillation [Recovering/Resolving]
  - Drug level increased [Not Recovered/Not Resolved]
  - Cardiac failure [Recovering/Resolving]

NARRATIVE: CASE EVENT DATE: 20201125
